FAERS Safety Report 7620567-X (Version None)
Quarter: 2011Q3

REPORT INFORMATION
  Report Type: 
  Country: None (occurrence: None)
  Receive Date: 20110719
  Receipt Date: 20110708
  Transmission Date: 20111222
  Serious: Yes (Death)
  Sender: FDA-Public Use
  Company Number: DE-BAXTER-2011BH023072

PATIENT

DRUGS (8)
  1. ADRIAMYCIN PFS [Suspect]
     Indication: HODGKIN'S DISEASE
     Route: 065
  2. PROCARBAZINE HYDROCHLORIDE [Suspect]
     Indication: HODGKIN'S DISEASE
     Route: 065
  3. VINCRISTINE [Suspect]
     Indication: HODGKIN'S DISEASE
     Route: 065
  4. NEUPOGEN [Suspect]
     Indication: HODGKIN'S DISEASE
     Route: 065
  5. PREDNISOLONE [Suspect]
     Indication: HODGKIN'S DISEASE
     Route: 065
  6. DACARBAZINE [Suspect]
     Indication: HODGKIN'S DISEASE
     Route: 065
  7. BLEOMYCIN SULFATE [Suspect]
     Indication: HODGKIN'S DISEASE
     Route: 065
  8. CYCLOPHOSPHAMIDE [Suspect]
     Indication: HODGKIN'S DISEASE
     Route: 065

REACTIONS (1)
  - DEATH [None]
